FAERS Safety Report 10740042 (Version 2)
Quarter: 2015Q1

REPORT INFORMATION
  Report Type: Spontaneous
  Country: US (occurrence: US)
  Receive Date: 20150127
  Receipt Date: 20150127
  Transmission Date: 20150721
  Serious: Yes (Hospitalization, Other)
  Sender: FDA-Public Use
  Company Number: US-JNJFOC-20150110492

PATIENT
  Age: 39 Year
  Sex: Female

DRUGS (1)
  1. EXTRA STRENGTH TYLENOL PM [Suspect]
     Active Substance: ACETAMINOPHEN\DIPHENHYDRAMINE HYDROCHLORIDE
     Indication: SUICIDE ATTEMPT
     Route: 048
     Dates: start: 20060619, end: 20060619

REACTIONS (7)
  - Blood pressure increased [Unknown]
  - Confusional state [Recovering/Resolving]
  - Somnolence [Recovered/Resolved]
  - Transaminases increased [Recovering/Resolving]
  - Toxicity to various agents [Recovering/Resolving]
  - Acidosis [Unknown]
  - Prothrombin time prolonged [Unknown]
